FAERS Safety Report 17019898 (Version 1)
Quarter: 2019Q4

REPORT INFORMATION
  Report Type: Spontaneous
  Country: PL (occurrence: PL)
  Receive Date: 20191112
  Receipt Date: 20191112
  Transmission Date: 20200122
  Serious: No
  Sender: FDA-Public Use
  Company Number: PL-ALKEM LABORATORIES LIMITED-PL-ALKEM-2019-07372

PATIENT
  Age: 67 Year
  Sex: Male

DRUGS (3)
  1. BUSPIRONE [Suspect]
     Active Substance: BUSPIRONE HYDROCHLORIDE
     Indication: ANXIETY DISORDER
     Dosage: UNK
     Route: 065
  2. PREGABALIN. [Suspect]
     Active Substance: PREGABALIN
     Indication: ANXIETY DISORDER
     Dosage: UNK
     Route: 065
  3. VENLAFAXINE [Suspect]
     Active Substance: VENLAFAXINE HYDROCHLORIDE
     Indication: ANXIETY DISORDER
     Dosage: UNK
     Route: 065

REACTIONS (1)
  - Drug ineffective [Unknown]
